FAERS Safety Report 8509198 (Version 2)
Quarter: 2012Q4

REPORT INFORMATION
  Report Type: 
  Country: US (occurrence: US)
  Receive Date: 20120412
  Receipt Date: 20121005
  Transmission Date: 20130627
  Serious: Yes (Hospitalization, Other)
  Sender: FDA-Public Use
  Company Number: US-ABBOTT-12P-163-0922224-00

PATIENT
  Age: 54 None
  Sex: Female
  Weight: 48.58 kg

DRUGS (24)
  1. CREON [Suspect]
     Indication: PANCREATIC INSUFFICIENCY
     Dosage: Daily dose: 12 Capsules
     Dates: start: 2010, end: 2012
  2. CREON [Suspect]
     Dosage: Daily dose: 18 Capsules
     Route: 048
     Dates: start: 2012
  3. LANTUS [Concomitant]
     Indication: DIABETES MELLITUS
  4. HUMALOG [Concomitant]
     Indication: DIABETES MELLITUS
  5. ATIVAN [Concomitant]
     Indication: ANXIETY
  6. LISINOPRIL [Concomitant]
     Indication: HYPERTENSION
  7. PRILOSEC [Concomitant]
     Indication: GASTROOESOPHAGEAL REFLUX DISEASE
  8. CELEBREX [Concomitant]
     Indication: ARTHRITIS
  9. CHEWABLE MULTI VITAMIN [Concomitant]
     Indication: VITAMIN SUPPLEMENTATION
     Dosage: 1 TABLET DAILY
  10. ZANTAC [Concomitant]
     Indication: GASTROOESOPHAGEAL REFLUX DISEASE
     Dosage: Daily dose: 150mg
  11. PERCOCET [Concomitant]
     Indication: BACK PAIN
     Dosage: 5/325 1TAB EVERY 4-6 HOURS AS NEEDED
  12. FIORICET [Concomitant]
     Indication: MIGRAINE
     Dosage: EVERY 4 HOURS AS NEEDED/60 MAX TABLETS A DAY
  13. FIORICET [Concomitant]
     Indication: HEADACHE
  14. ALLEGRA [Concomitant]
     Indication: PRODUCT USED FOR UNKNOWN INDICATION
  15. GLUCOPHAGE XR [Concomitant]
     Indication: PRODUCT USED FOR UNKNOWN INDICATION
  16. VITAMIN C [Concomitant]
     Indication: PRODUCT USED FOR UNKNOWN INDICATION
  17. METFORMIN [Concomitant]
     Dosage: WITH FOOD
  18. TRADJENTA [Concomitant]
     Indication: PRODUCT USED FOR UNKNOWN INDICATION
  19. LOPERAMIDE [Concomitant]
     Dosage: AS NEEDED
  20. INSULIN GLARGINE [Concomitant]
     Indication: PRODUCT USED FOR UNKNOWN INDICATION
     Dosage: 9 UNITS AT BEDTIME
  21. INSULIN GLARGINE [Concomitant]
     Dosage: 16 UNITS AT BEDTIME INTO SIDE OF THIGH
  22. INSULIN LISPRO [Concomitant]
     Indication: PRODUCT USED FOR UNKNOWN INDICATION
     Dosage: 3 UNITS PRIOR TO EACH MEAL
  23. INSULIN LISPRO [Concomitant]
     Dosage: 15 UNITS WITH MEALS IN ABDOMEN
  24. ZANTAC [Concomitant]
     Indication: PRODUCT USED FOR UNKNOWN INDICATION
     Dosage: 1 TABLET AT BEDTIME

REACTIONS (29)
  - Intestinal obstruction [Recovering/Resolving]
  - Failure to thrive [Recovering/Resolving]
  - Nausea [Recovering/Resolving]
  - Abdominal pain [Recovering/Resolving]
  - Vomiting [Recovering/Resolving]
  - Weight decreased [Recovering/Resolving]
  - Obstruction gastric [Unknown]
  - Nausea [Unknown]
  - Vomiting [Unknown]
  - Faeces discoloured [Not Recovered/Not Resolved]
  - Adhesion [Unknown]
  - Intestinal stenosis [Unknown]
  - Nausea [Unknown]
  - Weight gain poor [Unknown]
  - Back pain [Unknown]
  - Intervertebral disc disorder [Unknown]
  - Iron deficiency anaemia [Recovered/Resolved]
  - Blood glucose increased [Unknown]
  - Weight decreased [Unknown]
  - Hyperglycaemia [Unknown]
  - Fatigue [Unknown]
  - Migraine [Unknown]
  - Oedema peripheral [Unknown]
  - Diarrhoea [Unknown]
  - Insomnia [Unknown]
  - Anxiety [Unknown]
  - Activities of daily living impaired [Unknown]
  - Diabetes mellitus inadequate control [Unknown]
  - Type 1 diabetes mellitus [Unknown]
